FAERS Safety Report 15837590 (Version 1)
Quarter: 2019Q1

REPORT INFORMATION
  Report Type: Spontaneous
  Country: US (occurrence: US)
  Receive Date: 20190117
  Receipt Date: 20190117
  Transmission Date: 20190417
  Serious: Yes (Other)
  Sender: FDA-Public Use
  Company Number: None

PATIENT
  Age: 58 Year
  Sex: Female
  Weight: 73 kg

DRUGS (3)
  1. PACLITAXEL. [Suspect]
     Active Substance: PACLITAXEL
     Indication: METASTASES TO PERITONEUM
     Dosage: ?          OTHER FREQUENCY:EVERY 21 DAYS;?
     Route: 042
     Dates: start: 20180810, end: 20180810
  2. FOSAPREPITANT DIMEGLUMINE. [Suspect]
     Active Substance: FOSAPREPITANT DIMEGLUMINE
     Indication: NAUSEA
     Dosage: ?          OTHER FREQUENCY:BEFORE CHEMOTHERAP;?
     Route: 040
     Dates: start: 20180810, end: 20180810
  3. FOSAPREPITANT DIMEGLUMINE. [Suspect]
     Active Substance: FOSAPREPITANT DIMEGLUMINE
     Indication: VOMITING
     Dosage: ?          OTHER FREQUENCY:BEFORE CHEMOTHERAP;?
     Route: 040
     Dates: start: 20180810, end: 20180810

REACTIONS (14)
  - Urticaria [None]
  - Hypotension [None]
  - Tachypnoea [None]
  - Nausea [None]
  - Oxygen saturation decreased [None]
  - Flushing [None]
  - Hyperhidrosis [None]
  - Back pain [None]
  - Paraesthesia [None]
  - Dyspnoea [None]
  - Cough [None]
  - Chest discomfort [None]
  - Infusion related reaction [None]
  - Anaphylactic reaction [None]

NARRATIVE: CASE EVENT DATE: 20180810
